FAERS Safety Report 10402478 (Version 1)
Quarter: 2014Q3

REPORT INFORMATION
  Report Type: Spontaneous
  Country: GB (occurrence: None)
  Receive Date: 20140820
  Receipt Date: 20140820
  Transmission Date: 20150326
  Serious: Yes (Other)
  Sender: FDA-Public Use
  Company Number: IMP_07831_2014

PATIENT
  Age: 44 Year
  Sex: Female

DRUGS (1)
  1. CABERGOLINE. [Suspect]
     Active Substance: CABERGOLINE
     Indication: HYPERPROLACTINAEMIA
     Dosage: 0.5 MG, 1X/WEEK, [ONCE WEEKLY]?
     Dates: start: 2001, end: 2005

REACTIONS (6)
  - Compulsive shopping [None]
  - Neck pain [None]
  - Headache [None]
  - Impulse-control disorder [None]
  - Self-injurious ideation [None]
  - Economic problem [None]
